FAERS Safety Report 4425860-X (Version None)
Quarter: 2004Q3

REPORT INFORMATION
  Report Type: 
  Country: None (occurrence: None)
  Receive Date: 20040811
  Receipt Date: 20040803
  Transmission Date: 20050211
  Serious: Yes (Other)
  Sender: FDA-Public Use
  Company Number: 04-00464

PATIENT
  Age: 84 Year
  Sex: Female

DRUGS (5)
  1. HYDROCHLOROTHIAZDE TAB [Suspect]
     Indication: HYPERTENSION
     Dosage: 25MG, ONCE DAILY,
  2. PAROXETINE HCL [Suspect]
     Indication: DEPRESSION
     Dosage: 20MG, ONCE DAILY,
  3. AMLODIPINE [Concomitant]
  4. ASPIRIN [Concomitant]
  5. FAMOTIDINE [Concomitant]

REACTIONS (8)
  - BLOOD OSMOLARITY DECREASED [None]
  - DEPRESSION [None]
  - HEADACHE [None]
  - HYPONATRAEMIA [None]
  - INAPPROPRIATE ANTIDIURETIC HORMONE SECRETION [None]
  - LETHARGY [None]
  - MALAISE [None]
  - URINE OSMOLARITY INCREASED [None]
